FAERS Safety Report 24141209 (Version 1)
Quarter: 2024Q3

REPORT INFORMATION
  Report Type: Spontaneous
  Country: CN (occurrence: CN)
  Receive Date: 20240726
  Receipt Date: 20240726
  Transmission Date: 20241016
  Serious: Yes (Other)
  Sender: PFIZER
  Company Number: CN-PFIZER INC-PV202400096843

PATIENT
  Age: 69 Year
  Sex: Male

DRUGS (6)
  1. TIGECYCLINE [Suspect]
     Active Substance: TIGECYCLINE
     Indication: Brain contusion
     Dosage: 50 MG, 2X/DAY
     Route: 041
     Dates: start: 20240611
  2. TIGECYCLINE [Suspect]
     Active Substance: TIGECYCLINE
     Indication: Pneumonia
  3. BIAPENEM [Suspect]
     Active Substance: BIAPENEM
     Indication: Brain contusion
     Dosage: Q8H
     Route: 041
     Dates: start: 20240607, end: 20240607
  4. ETIMICIN SULFATE/SODIUM CHLORIDE [Concomitant]
     Indication: Pneumonia
     Dosage: Q12H
     Route: 041
  5. SODIUM CHLORIDE [Concomitant]
     Active Substance: SODIUM CHLORIDE
     Dosage: 100 ML, 2X/DAY
     Route: 041
  6. SODIUM CHLORIDE [Concomitant]
     Active Substance: SODIUM CHLORIDE
     Dosage: Q8H
     Route: 041

REACTIONS (3)
  - Drug-induced liver injury [Recovering/Resolving]
  - Aspartate aminotransferase increased [Recovered/Resolved]
  - Alanine aminotransferase increased [Recovered/Resolved]

NARRATIVE: CASE EVENT DATE: 20240612
